FAERS Safety Report 5269185-1 (Version None)
Quarter: 2007Q1

REPORT INFORMATION
  Report Type: 
  Country: None (occurrence: None)
  Receive Date: 20070319
  Receipt Date: 20070306
  Transmission Date: 20070707
  Serious: Yes (Hospitalization)
  Sender: FDA-Public Use
  Company Number: US-SHR-US-2007-007871

PATIENT
  Sex: Female

DRUGS (2)
  1. BETASERON [Suspect]
     Route: 058
     Dates: start: 20030207, end: 20030217
  2. BETASERON [Suspect]
     Route: 058
     Dates: start: 20041117

REACTIONS (1)
  - ALLERGY TO ARTHROPOD STING [None]
